FAERS Safety Report 23069991 (Version 1)
Quarter: 2023Q4

REPORT INFORMATION
  Report Type: Spontaneous
  Country: CN (occurrence: CN)
  Receive Date: 20231016
  Receipt Date: 20231016
  Transmission Date: 20240109
  Serious: Yes (Hospitalization, Other)
  Sender: FDA-Public Use
  Company Number: CN-PFIZER INC-PV202300166335

PATIENT
  Age: 3 Year
  Sex: Male
  Weight: 14 kg

DRUGS (3)
  1. EPIRUBICIN [Suspect]
     Active Substance: EPIRUBICIN
     Indication: Malignant connective tissue neoplasm
     Dosage: 18 MG, 1X/DAY
     Route: 041
     Dates: start: 20230908, end: 20230909
  2. CYCLOPHOSPHAMIDE [Suspect]
     Active Substance: CYCLOPHOSPHAMIDE
     Indication: Malignant connective tissue neoplasm
     Dosage: 0.73 G, 1X/DAY
     Route: 041
     Dates: start: 20230908, end: 20230909
  3. VINDESINE SULFATE [Suspect]
     Active Substance: VINDESINE SULFATE
     Indication: Malignant connective tissue neoplasm
     Dosage: 1.8 MG, 1X/DAY
     Route: 041
     Dates: start: 20230908, end: 20230908

REACTIONS (4)
  - Myelosuppression [Recovering/Resolving]
  - Haemoglobin decreased [Recovering/Resolving]
  - C-reactive protein increased [Recovering/Resolving]
  - Off label use [Unknown]

NARRATIVE: CASE EVENT DATE: 20230917
